FAERS Safety Report 7414900-1 (Version None)
Quarter: 2011Q1

REPORT INFORMATION
  Report Type: 
  Country: None (occurrence: None)
  Receive Date: 20110302
  Receipt Date: 20101222
  Transmission Date: 20110831
  Serious: No
  Sender: FDA-Public Use
  Company Number: 024302

PATIENT
  Sex: Female
  Weight: 76.2 kg

DRUGS (9)
  1. LEXAPRO [Concomitant]
  2. FOLIC ACID [Concomitant]
  3. LEVOTHYROXINE SODIUM [Concomitant]
  4. NEXIUM /01473902/ [Concomitant]
  5. METHOTREXATE [Concomitant]
  6. DEPO-MEDROL [Concomitant]
  7. DIOVAN HCT [Concomitant]
  8. LIPITOR [Concomitant]
  9. CIMZIA [Suspect]
     Indication: RHEUMATOID ARTHRITIS
     Dosage: (ONE SHOT EVERY OTHER WEEK; PRE-FILLED SYRING SUBCUTANEOUS)
     Route: 058
     Dates: start: 20101101

REACTIONS (3)
  - HEADACHE [None]
  - BLOOD PRESSURE INCREASED [None]
  - FATIGUE [None]
